FAERS Safety Report 5036791-9 (Version None)
Quarter: 2006Q2

REPORT INFORMATION
  Report Type: 
  Country: None (occurrence: None)
  Receive Date: 20060616
  Receipt Date: 20051028
  Transmission Date: 20061013
  Serious: No
  Sender: FDA-Public Use
  Company Number: 2006RL000062

PATIENT
  Sex: 0

DRUGS (2)
  1. OMACOR [Suspect]
     Indication: DRUG USE FOR UNKNOWN INDICATION
     Dosage: 1000 MG;BID;PO
     Route: 048
  2. AMICAR [Suspect]
     Dosage: 1000 MG;BID;PO
     Route: 048

REACTIONS (1)
  - MEDICATION ERROR [None]
